FAERS Safety Report 5226794-3 (Version None)
Quarter: 2007Q1

REPORT INFORMATION
  Report Type: 
  Country: None (occurrence: None)
  Receive Date: 20070130
  Receipt Date: 20070122
  Transmission Date: 20070707
  Serious: Yes (Other)
  Sender: FDA-Public Use
  Company Number: EGEL2007A005

PATIENT
  Age: 52 Year
  Sex: Female

DRUGS (1)
  1. ESTROGEL (ESTRADIOL) 0.06% [Suspect]
     Dosage: DOSE TWICE DAILY TRANSCUTANEOUS
     Route: 062

REACTIONS (5)
  - DIZZINESS [None]
  - DYSPNOEA [None]
  - FACE OEDEMA [None]
  - FLUSHING [None]
  - HYPOAESTHESIA [None]
